FAERS Safety Report 4973783-X (Version None)
Quarter: 2006Q2

REPORT INFORMATION
  Report Type: 
  Country: None (occurrence: None)
  Receive Date: 20060414
  Receipt Date: 20060405
  Transmission Date: 20061013
  Serious: Yes (Hospitalization)
  Sender: FDA-Public Use
  Company Number: JP-MERCK-0604USA00885

PATIENT
  Sex: Female

DRUGS (7)
  1. FOSAMAX [Suspect]
     Route: 048
     Dates: end: 20060401
  2. MARZULENE-S [Concomitant]
     Route: 048
     Dates: end: 20060401
  3. CYANOCOBALAMIN [Concomitant]
     Route: 065
     Dates: end: 20060401
  4. PRIMPERAN TAB [Concomitant]
     Route: 065
     Dates: end: 20060401
  5. CALONAL [Concomitant]
     Route: 065
     Dates: end: 20060401
  6. MINALFEN [Concomitant]
     Route: 065
     Dates: end: 20060401
  7. AMLODIN [Concomitant]
     Route: 048
     Dates: end: 20060401

REACTIONS (2)
  - DRY MOUTH [None]
  - PYREXIA [None]
